FAERS Safety Report 15118615 (Version 1)
Quarter: 2018Q4

REPORT INFORMATION
  Report Type: Spontaneous
  Country: IN (occurrence: IN)
  Receive Date: 20180709
  Receipt Date: 20180709
  Transmission Date: 20190204
  Serious: No
  Sender: FDA-Public Use
  Company Number: IN-LUPIN PHARMACEUTICALS INC.-2018-02935

PATIENT
  Age: 53 Year
  Sex: Male

DRUGS (4)
  1. SENSIVAL [Concomitant]
     Indication: INSOMNIA
     Dosage: 1 DF, QD
     Route: 048
     Dates: start: 20180401
  2. DULOT CAPS 20 MG [Suspect]
     Active Substance: DULOXETINE HYDROCHLORIDE
     Indication: HEAD DISCOMFORT
  3. DULOT CAPS 20 MG [Suspect]
     Active Substance: DULOXETINE HYDROCHLORIDE
     Indication: ANXIETY
     Dosage: 20 MG, BID
     Route: 048
     Dates: start: 20180401
  4. SHELCAL CT [Concomitant]
     Indication: CHEST PAIN
     Dosage: 1 DF, QD
     Route: 048
     Dates: start: 20180404

REACTIONS (2)
  - Dry mouth [Not Recovered/Not Resolved]
  - Vision blurred [Not Recovered/Not Resolved]

NARRATIVE: CASE EVENT DATE: 20180403
